FAERS Safety Report 5530896-1 (Version None)
Quarter: 2007Q4

REPORT INFORMATION
  Report Type: 
  Country: None (occurrence: None)
  Receive Date: 20071130
  Receipt Date: 20071128
  Transmission Date: 20080405
  Serious: Yes (Other)
  Sender: FDA-Public Use
  Company Number: MY-ASTRAZENECA-2007AP07599

PATIENT
  Age: 18575 Day
  Sex: Female
  Weight: 56 kg

DRUGS (1)
  1. SYMBICORT [Suspect]
     Indication: ASTHMA
     Dosage: FOUR TIMES DAILY ADMINISTRATION
     Route: 055
     Dates: start: 20071112, end: 20071115

REACTIONS (1)
  - GASTRITIS [None]
